FAERS Safety Report 7179849-0 (Version None)
Quarter: 2010Q4

REPORT INFORMATION
  Report Type: 
  Country: None (occurrence: None)
  Receive Date: 20101209
  Receipt Date: 20101130
  Transmission Date: 20110411
  Serious: Yes (Other)
  Sender: FDA-Public Use
  Company Number: 2010JP007085

PATIENT
  Age: 19 Year
  Sex: Male

DRUGS (3)
  1. PROGRAF [Suspect]
     Indication: HEART TRANSPLANT
  2. CELLCEPT [Concomitant]
  3. PREDNISOLONE [Concomitant]

REACTIONS (6)
  - ARRHYTHMIA SUPRAVENTRICULAR [None]
  - CARDIOTOXICITY [None]
  - DRUG LEVEL INCREASED [None]
  - GENERALISED OEDEMA [None]
  - NEPHROPATHY TOXIC [None]
  - RENAL IMPAIRMENT [None]
